FAERS Safety Report 5596490-1 (Version None)
Quarter: 2007Q4

REPORT INFORMATION
  Report Type: 
  Country: None (occurrence: None)
  Receive Date: 20071219
  Receipt Date: 20071017
  Transmission Date: 20080405
  Serious: No
  Sender: FDA-Public Use
  Company Number: US-WYE-H00771907

PATIENT
  Age: 54 Year
  Sex: Male
  Weight: 150.73 kg

DRUGS (14)
  1. TORISEL [Suspect]
     Indication: RENAL CELL CARCINOMA STAGE UNSPECIFIED
     Dosage: 25 MG 1X PER 1 WK, INTRAVENOUS
     Route: 042
     Dates: start: 20070823
  2. METOLAZONE [Concomitant]
  3. IBUPROFEN [Concomitant]
  4. BENADRYL [Concomitant]
  5. LEXAPRO [Concomitant]
  6. PROCARDIA XL [Concomitant]
  7. AMBIEN [Concomitant]
  8. ZOLOFT [Concomitant]
  9. MICARDIS [Concomitant]
  10. ZANTAC [Concomitant]
  11. LORAZEPAM [Concomitant]
  12. FLEXERIL [Concomitant]
  13. LORCET-HD [Concomitant]
  14. LASIX [Concomitant]

REACTIONS (1)
  - HALLUCINATION [None]
